FAERS Safety Report 5700916-X (Version None)
Quarter: 2008Q2

REPORT INFORMATION
  Report Type: 
  Country: None (occurrence: None)
  Receive Date: 20080410
  Receipt Date: 20080408
  Transmission Date: 20081010
  Serious: Yes (Other)
  Sender: FDA-Public Use
  Company Number: B0505633A

PATIENT
  Age: 41 Year
  Sex: Female

DRUGS (4)
  1. SEROXAT [Suspect]
     Indication: MENOPAUSE
     Dosage: 20MG PER DAY
     Route: 048
     Dates: start: 20010601, end: 20060101
  2. TRAMADOL HCL [Concomitant]
  3. RISPERIDONE [Concomitant]
  4. ZOPICLONE [Concomitant]

REACTIONS (6)
  - ABNORMAL BEHAVIOUR [None]
  - DEPRESSION [None]
  - DRUG DEPENDENCE [None]
  - INAPPROPRIATE AFFECT [None]
  - INTENTIONAL OVERDOSE [None]
  - MANIA [None]
